FAERS Safety Report 21682214 (Version 1)
Quarter: 2022Q4

REPORT INFORMATION
  Report Type: Spontaneous
  Country: RO (occurrence: None)
  Receive Date: 20221205
  Receipt Date: 20221205
  Transmission Date: 20230113
  Serious: Yes (Other)
  Sender: FDA-Public Use
  Company Number: RO-ROCHE-3229123

PATIENT
  Age: 30 Year
  Sex: Female

DRUGS (4)
  1. CELLCEPT [Suspect]
     Active Substance: MYCOPHENOLATE MOFETIL
     Indication: Product used for unknown indication
     Route: 065
     Dates: start: 2021
  2. ZELBORAF [Suspect]
     Active Substance: VEMURAFENIB
     Indication: Metastatic malignant melanoma
     Route: 065
     Dates: start: 202207
  3. DACARBAZINE [Concomitant]
     Active Substance: DACARBAZINE
     Indication: Metastatic malignant melanoma
     Dates: start: 202211
  4. IPILIMUMAB [Concomitant]
     Active Substance: IPILIMUMAB

REACTIONS (8)
  - Disease progression [Unknown]
  - Metastases to lymph nodes [Unknown]
  - Metastases to peritoneum [Unknown]
  - Metastases to bone [Unknown]
  - Metastases to kidney [Unknown]
  - Metastases to skin [Unknown]
  - Blood lactate dehydrogenase decreased [Unknown]
  - Blood lactate dehydrogenase increased [Unknown]

NARRATIVE: CASE EVENT DATE: 20220101
